FAERS Safety Report 10207264 (Version 1)
Quarter: 2014Q2

REPORT INFORMATION
  Report Type: Spontaneous
  Country: US (occurrence: US)
  Receive Date: 20140530
  Receipt Date: 20140530
  Transmission Date: 20141212
  Serious: No
  Sender: FDA-Public Use
  Company Number: US-GLAXOSMITHKLINE-A1027675A

PATIENT
  Age: 83 Year
  Sex: Male

DRUGS (12)
  1. VENTOLIN [Suspect]
     Indication: ASTHMA
     Dosage: 2PUFF TWICE PER DAY
     Route: 055
     Dates: start: 2003
  2. NEXIUM [Concomitant]
  3. NORVASC [Concomitant]
  4. PRANDIN [Concomitant]
  5. COREG [Concomitant]
  6. DIOVAN [Concomitant]
  7. ASPIRIN [Concomitant]
  8. ZETIA [Concomitant]
  9. CRESTOR [Concomitant]
  10. CENTRUM [Concomitant]
  11. VITAMIN D [Concomitant]
  12. CO Q 10 [Concomitant]

REACTIONS (1)
  - Glycosylated haemoglobin increased [Not Recovered/Not Resolved]
